FAERS Safety Report 23111723 (Version 4)
Quarter: 2024Q1

REPORT INFORMATION
  Report Type: Spontaneous
  Country: US (occurrence: US)
  Receive Date: 20231026
  Receipt Date: 20240228
  Transmission Date: 20240410
  Serious: No
  Sender: FDA-Public Use
  Company Number: US-Calliditas-2023CAL01370

PATIENT
  Age: 24 Year
  Sex: Female

DRUGS (1)
  1. TARPEYO [Suspect]
     Active Substance: BUDESONIDE
     Indication: Haematuria
     Dosage: 16 MG (4 MG CAPSULES) ONCE DAILY
     Route: 048
     Dates: start: 20231018

REACTIONS (7)
  - Off label use [Unknown]
  - Vomiting [Unknown]
  - Product use complaint [Unknown]
  - Intentional dose omission [Recovered/Resolved]
  - Hypertension [Recovering/Resolving]
  - Muscle spasms [Unknown]
  - Increased appetite [Unknown]

NARRATIVE: CASE EVENT DATE: 20230908
